FAERS Safety Report 13513454 (Version 15)
Quarter: 2019Q1

REPORT INFORMATION
  Report Type: Report from Study
  Country: GB (occurrence: GB)
  Receive Date: 20170504
  Receipt Date: 20190307
  Transmission Date: 20190417
  Serious: Yes (Hospitalization, Other)
  Sender: FDA-Public Use
  Company Number: GB-BRISTOL-MYERS SQUIBB COMPANY-BMS-2016-068688

PATIENT
  Sex: Female

DRUGS (2)
  1. METHOTREXATE. [Concomitant]
     Active Substance: METHOTREXATE
     Indication: PRODUCT USED FOR UNKNOWN INDICATION
     Route: 065
  2. ABATACEPT [Suspect]
     Active Substance: ABATACEPT
     Indication: RHEUMATOID ARTHRITIS
     Dosage: 125 MG, QWK
     Route: 058
     Dates: start: 20151209

REACTIONS (9)
  - Localised infection [Unknown]
  - Infection [Unknown]
  - Haemoglobin abnormal [Unknown]
  - Lower respiratory tract infection [Unknown]
  - Fall [Unknown]
  - Pulmonary oedema [Unknown]
  - Limb injury [Unknown]
  - Nail disorder [Unknown]
  - Malaise [Unknown]
